FAERS Safety Report 9463103 (Version 2)
Quarter: 2014Q1

REPORT INFORMATION
  Report Type: Spontaneous
  Country: US (occurrence: US)
  Receive Date: 20130816
  Receipt Date: 20140210
  Transmission Date: 20141002
  Serious: Yes (Other)
  Sender: FDA-Public Use
  Company Number: US-IAC JAPAN XML-USA-2013-0105300

PATIENT
  Age: 56 Year
  Sex: Male

DRUGS (7)
  1. BUTRANS [Suspect]
     Indication: BACK DISORDER
     Dosage: 20 MCG/HR, WEEKLY
     Route: 062
     Dates: start: 201201
  2. BUTRANS [Suspect]
     Indication: SCIATICA
  3. SOMA [Concomitant]
     Indication: DYSPHAGIA
     Dosage: 350 MG, BID
     Route: 048
  4. VALIUM                             /00017001/ [Concomitant]
     Indication: PRODUCT USED FOR UNKNOWN INDICATION
     Dosage: 5 MG, BID
     Route: 048
  5. PRILOSEC                           /00661201/ [Concomitant]
     Indication: GASTROOESOPHAGEAL REFLUX DISEASE
     Dosage: 20 MG, DAILY
     Route: 048
  6. PRILOSEC                           /00661201/ [Concomitant]
     Indication: GASTROOESOPHAGEAL REFLUX DISEASE
  7. LISINOPRIL [Concomitant]
     Indication: HYPERTENSION
     Dosage: 20 MG, DAILY
     Route: 048

REACTIONS (11)
  - Staphylococcal infection [Recovered/Resolved]
  - Hepatic cirrhosis [Unknown]
  - Weight increased [Not Recovered/Not Resolved]
  - Spider vein [Unknown]
  - Rosacea [Unknown]
  - Migraine [Unknown]
  - Gastrooesophageal reflux disease [Unknown]
  - Hiatus hernia [Unknown]
  - Dysphagia [Unknown]
  - Drug ineffective [Not Recovered/Not Resolved]
  - Hypertension [Unknown]
